FAERS Safety Report 6203701-8 (Version None)
Quarter: 2009Q2

REPORT INFORMATION
  Report Type: 
  Country: None (occurrence: None)
  Receive Date: 20090521
  Receipt Date: 20090512
  Transmission Date: 20091009
  Serious: Yes (Other)
  Sender: FDA-Public Use
  Company Number: US-GDP-09405930

PATIENT
  Age: 70 Year
  Sex: Female

DRUGS (6)
  1. CLOBETASOL 0.05% (CLOBETASOL) (0.31 MG, 0.31 MG) [Suspect]
     Indication: ORAL LICHEN PLANUS
     Dosage: 0.31 MG BID TOPICAL, 0.31 MG QD TOPICAL
     Route: 061
  2. ACETAMINOPHEN [Concomitant]
  3. TYLENOL W/ CODEINE NO. 3 [Concomitant]
  4. LORAZEPAM [Concomitant]
  5. CAFFEINE [Concomitant]
  6. IBUPROFEN [Concomitant]

REACTIONS (5)
  - ADRENAL SUPPRESSION [None]
  - CONTUSION [None]
  - CUSHING'S SYNDROME [None]
  - DRUG EFFECT DECREASED [None]
  - IATROGENIC INJURY [None]
